FAERS Safety Report 13986940 (Version 3)
Quarter: 2018Q2

REPORT INFORMATION
  Report Type: Report from Study
  Country: US (occurrence: US)
  Receive Date: 20170919
  Receipt Date: 20180525
  Transmission Date: 20180711
  Serious: Yes (Hospitalization)
  Sender: FDA-Public Use
  Company Number: US-OTSUKA-2017_020083

PATIENT
  Sex: Male

DRUGS (2)
  1. TOLVAPTAN [Suspect]
     Active Substance: TOLVAPTAN
     Dosage: UNK (RESTARTED)
     Route: 065
     Dates: end: 20171229
  2. TOLVAPTAN [Suspect]
     Active Substance: TOLVAPTAN
     Indication: HYPONATRAEMIA
     Dosage: 15 MG, QD (STRENGTH: 15 MG)
     Route: 048
     Dates: start: 20170330

REACTIONS (5)
  - Cardiac failure acute [Unknown]
  - Transplant dysfunction [Unknown]
  - Sepsis [Unknown]
  - Urinary tract infection [Unknown]
  - Hyponatraemia [Unknown]
